FAERS Safety Report 4866171-8 (Version None)
Quarter: 2005Q4

REPORT INFORMATION
  Report Type: 
  Country: None (occurrence: None)
  Receive Date: 20051221
  Receipt Date: 20051209
  Transmission Date: 20060501
  Serious: Yes (Hospitalization)
  Sender: FDA-Public Use
  Company Number: S05-USA-04746-01

PATIENT
  Age: 82 Year
  Sex: Female
  Weight: 50.5 kg

DRUGS (6)
  1. LEXAPRO [Suspect]
     Indication: DEPRESSION
     Dates: start: 20050901, end: 20051003
  2. DEMADEX [Suspect]
     Dates: start: 20050901, end: 20051003
  3. ZIAC [Suspect]
     Dates: start: 20040101, end: 20051003
  4. NORVASC [Concomitant]
  5. SEROQUEL [Concomitant]
  6. ASPIRIN [Concomitant]

REACTIONS (12)
  - ANAEMIA [None]
  - AZOTAEMIA [None]
  - DEPRESSION [None]
  - HYPONATRAEMIA [None]
  - HYPOVOLAEMIA [None]
  - INAPPROPRIATE ANTIDIURETIC HORMONE SECRETION [None]
  - METABOLIC ALKALOSIS [None]
  - NEPHROSCLEROSIS [None]
  - PARANOIA [None]
  - SKIN TURGOR DECREASED [None]
  - TREMOR [None]
  - WEIGHT DECREASED [None]
